FAERS Safety Report 9087358 (Version 1)
Quarter: 2013Q1

REPORT INFORMATION
  Report Type: Spontaneous
  Country: IT (occurrence: IT)
  Receive Date: 20130217
  Receipt Date: 20130217
  Transmission Date: 20140127
  Serious: Yes (Death)
  Sender: FDA-Public Use
  Company Number: IT-TEVA-385356ISR

PATIENT
  Age: 65 Year
  Sex: Female

DRUGS (1)
  1. CEFTRIAXONE RATIOPHARM [Suspect]
     Indication: ANTIBIOTIC PROPHYLAXIS
     Dosage: 1 GRAM DAILY;
     Route: 030
     Dates: start: 20130129, end: 20130130

REACTIONS (1)
  - Circulatory collapse [Fatal]
